FAERS Safety Report 18536504 (Version 1)
Quarter: 2020Q4

REPORT INFORMATION
  Report Type: Spontaneous
  Country: US (occurrence: US)
  Receive Date: 20201124
  Receipt Date: 20201124
  Transmission Date: 20210114
  Serious: Yes (Other)
  Sender: FDA-Public Use
  Company Number: US-LUPIN PHARMACEUTICALS INC.-2020-09515

PATIENT
  Age: 18 Year
  Sex: Female

DRUGS (2)
  1. BETAMETHASONE. [Suspect]
     Active Substance: BETAMETHASONE
     Indication: PRODUCT USED FOR UNKNOWN INDICATION
     Dosage: 12 MILLIGRAM, UNK
     Route: 030
  2. POLYGYNAX (NEOMYCIN\NYSTATIN\POLYMYXIN B SULFATE) [Suspect]
     Active Substance: NEOMYCIN\NYSTATIN\POLYMYXIN B SULFATE
     Indication: VAGINAL DISCHARGE
     Dosage: UNK (60 CAPSULES FROM 8TH WEEK OF GESTATION UNTIL DELIVERY)
     Route: 067

REACTIONS (2)
  - Exposure during pregnancy [Unknown]
  - Premature delivery [Unknown]
